FAERS Safety Report 14282233 (Version 1)
Quarter: 2017Q4

REPORT INFORMATION
  Report Type: Spontaneous
  Country: US (occurrence: US)
  Receive Date: 20171213
  Receipt Date: 20171213
  Transmission Date: 20180321
  Serious: No
  Sender: FDA-Public Use
  Company Number: US-ASTRAZENECA-2017SF27051

PATIENT
  Sex: Male
  Weight: 81.2 kg

DRUGS (3)
  1. INSULIN [Concomitant]
     Active Substance: INSULIN NOS
     Dosage: FREQUENCY UNKNOWN
     Route: 065
  2. METFORMIN [Concomitant]
     Active Substance: METFORMIN HYDROCHLORIDE
     Dosage: FREQUENCY UNKNOWN
     Route: 065
  3. FARXIGA [Suspect]
     Active Substance: DAPAGLIFLOZIN PROPANEDIOL
     Dosage: FREQUENCY UNKNOWN
     Route: 048

REACTIONS (1)
  - Weight decreased [Unknown]
